FAERS Safety Report 24289665 (Version 1)
Quarter: 2024Q3

REPORT INFORMATION
  Report Type: Spontaneous
  Country: FR (occurrence: FR)
  Receive Date: 20240906
  Receipt Date: 20240906
  Transmission Date: 20241017
  Serious: Yes (Other)
  Sender: ROCHE
  Company Number: None

PATIENT

DRUGS (2)
  1. MYCOPHENOLATE MOFETIL [Suspect]
     Active Substance: MYCOPHENOLATE MOFETIL
     Indication: Product used for unknown indication
     Dosage: UNK
     Route: 065
  2. CERTICAN [Suspect]
     Active Substance: EVEROLIMUS
     Indication: Liver transplant
     Dosage: , LESS THAN 4 WEEKS AFTER LIVER TRANSPLANTATION
     Route: 065
     Dates: start: 20141114, end: 201501

REACTIONS (1)
  - Chemical peritonitis [Unknown]

NARRATIVE: CASE EVENT DATE: 20150105
